FAERS Safety Report 21175393 (Version 1)
Quarter: 2022Q3

REPORT INFORMATION
  Report Type: Spontaneous
  Country: CA (occurrence: None)
  Receive Date: 20220805
  Receipt Date: 20220805
  Transmission Date: 20221027
  Serious: Yes (Other)
  Sender: FDA-Public Use
  Company Number: CA-ROCHE-3151408

PATIENT
  Age: 56 Year
  Sex: Female

DRUGS (7)
  1. RUXIENCE [Suspect]
     Active Substance: RITUXIMAB-PVVR
     Indication: Rheumatoid arthritis
     Route: 042
     Dates: start: 20211015, end: 20211028
  2. RITUXAN [Suspect]
     Active Substance: RITUXIMAB
     Indication: Product used for unknown indication
     Route: 065
     Dates: start: 2013, end: 2019
  3. CALCIUM [Concomitant]
     Active Substance: CALCIUM
  4. PREDNISONE [Concomitant]
     Active Substance: PREDNISONE
     Dates: start: 202011
  5. PROLIA [Concomitant]
     Active Substance: DENOSUMAB
  6. TYLENOL [Concomitant]
     Active Substance: ACETAMINOPHEN
  7. HERBALS\TURMERIC [Concomitant]
     Active Substance: HERBALS\TURMERIC

REACTIONS (5)
  - Urticaria [Recovered/Resolved]
  - Eye pruritus [Recovered/Resolved]
  - Ear pruritus [Recovered/Resolved]
  - Malaise [Not Recovered/Not Resolved]
  - Drug ineffective [Unknown]

NARRATIVE: CASE EVENT DATE: 20211028
